FAERS Safety Report 6041370-0 (Version None)
Quarter: 2009Q1

REPORT INFORMATION
  Report Type: 
  Country: None (occurrence: None)
  Receive Date: 20090116
  Receipt Date: 20081007
  Transmission Date: 20090719
  Serious: No
  Sender: FDA-Public Use
  Company Number: US-BRISTOL-MYERS SQUIBB COMPANY-14362545

PATIENT
  Age: 50 Year
  Sex: Male

DRUGS (2)
  1. ABILIFY [Suspect]
     Indication: PARKINSON'S DISEASE
     Dosage: REDUCED TO 10 MG
  2. ABILIFY [Suspect]
     Indication: HALLUCINATION
     Dosage: REDUCED TO 10 MG

REACTIONS (1)
  - DROOLING [None]
